FAERS Safety Report 5747034-2 (Version None)
Quarter: 2008Q2

REPORT INFORMATION
  Report Type: 
  Country: None (occurrence: None)
  Receive Date: 20080522
  Receipt Date: 20080514
  Transmission Date: 20081010
  Serious: Yes (Other)
  Sender: FDA-Public Use
  Company Number: US-AMGEN-US279607

PATIENT
  Sex: Female

DRUGS (8)
  1. ARANESP [Suspect]
     Indication: ANAEMIA OF MALIGNANT DISEASE
     Route: 058
     Dates: start: 20080108, end: 20080305
  2. TOPROL-XL [Concomitant]
  3. ZYRTEC [Concomitant]
  4. TAXOTERE [Concomitant]
  5. CYCLOPHOSPHAMIDE [Concomitant]
  6. EPIRUBICIN [Concomitant]
  7. FLUOROURACIL [Concomitant]
  8. RADIATION THERAPY [Concomitant]
     Dates: start: 20080301

REACTIONS (1)
  - HAEMOGLOBIN DECREASED [None]
